FAERS Safety Report 6145883-2 (Version None)
Quarter: 2009Q2

REPORT INFORMATION
  Report Type: 
  Country: None (occurrence: None)
  Receive Date: 20090407
  Receipt Date: 20090330
  Transmission Date: 20091009
  Serious: Yes (Hospitalization)
  Sender: FDA-Public Use
  Company Number: PHHY2009CA09812

PATIENT
  Sex: Male
  Weight: 75 kg

DRUGS (6)
  1. EXJADE [Suspect]
     Indication: IRON OVERLOAD
     Dosage: 500 MG, TID
     Route: 048
     Dates: start: 20090115, end: 20090302
  2. EXJADE [Suspect]
     Indication: MYELODYSPLASTIC SYNDROME
  3. ARICEPT [Concomitant]
  4. IBUPROFEN [Concomitant]
  5. TACROLIMUS [Concomitant]
  6. TEMAZEPAM [Concomitant]

REACTIONS (2)
  - DIARRHOEA [None]
  - PERIRECTAL ABSCESS [None]
